FAERS Safety Report 10426381 (Version 1)
Quarter: 2014Q3

REPORT INFORMATION
  Report Type: Spontaneous
  Country: FR (occurrence: FR)
  Receive Date: 20140903
  Receipt Date: 20140903
  Transmission Date: 20150326
  Serious: Yes (Other)
  Sender: FDA-Public Use
  Company Number: FR-JNJFOC-20140901718

PATIENT
  Sex: Female

DRUGS (1)
  1. REMICADE [Suspect]
     Active Substance: INFLIXIMAB
     Indication: CROHN^S DISEASE
     Dosage: TREATED FOR 10 YEARS
     Route: 042

REACTIONS (4)
  - Psoriasis [Unknown]
  - Joint injury [Unknown]
  - Hypersensitivity [Unknown]
  - Thrombophlebitis [Unknown]
